FAERS Safety Report 6572647-8 (Version None)
Quarter: 2010Q1

REPORT INFORMATION
  Report Type: 
  Country: None (occurrence: None)
  Receive Date: 20100205
  Receipt Date: 20100112
  Transmission Date: 20100710
  Serious: Yes (Other)
  Sender: FDA-Public Use
  Company Number: US-NAPPMUNDI-USA-2009-0038219

PATIENT
  Sex: Female

DRUGS (5)
  1. OXYCONTIN [Suspect]
     Indication: PAIN
     Dosage: 20 MG, SEE TEXT
     Dates: start: 19970101, end: 20060101
  2. OXYCONTIN [Suspect]
     Indication: BACK INJURY
  3. OXYCONTIN [Suspect]
     Indication: MUSCLE INJURY
  4. OXYCONTIN [Suspect]
     Indication: INTERVERTEBRAL DISC PROTRUSION
  5. OXYCONTIN [Suspect]
     Indication: SURGERY

REACTIONS (9)
  - ABDOMINAL PAIN UPPER [None]
  - AMNESIA [None]
  - COMA [None]
  - DEPRESSION [None]
  - DRUG DEPENDENCE [None]
  - DRUG WITHDRAWAL SYNDROME [None]
  - INJURY [None]
  - PAIN [None]
  - VOMITING [None]
